FAERS Safety Report 7407308-6 (Version None)
Quarter: 2011Q2

REPORT INFORMATION
  Report Type: 
  Country: None (occurrence: None)
  Receive Date: 20110411
  Receipt Date: 20110330
  Transmission Date: 20111010
  Serious: Yes (Other)
  Sender: FDA-Public Use
  Company Number: PHHY2011FR13927

PATIENT
  Sex: Female
  Weight: 70 kg

DRUGS (3)
  1. ESOMEPRAZOLE [Concomitant]
     Indication: BARRETT'S OESOPHAGUS
  2. SOLUPRED [Concomitant]
     Indication: POLYARTHRITIS
     Dosage: 5 MG, UNK
  3. ACLASTA [Suspect]
     Indication: OSTEOPOROSIS
     Dosage: UNK
     Dates: start: 20090701

REACTIONS (3)
  - OESOPHAGEAL ULCER [None]
  - ANAEMIA [None]
  - OESOPHAGITIS [None]
